FAERS Safety Report 12736238 (Version 1)
Quarter: 2016Q3

REPORT INFORMATION
  Report Type: Spontaneous
  Country: BR (occurrence: BR)
  Receive Date: 20160912
  Receipt Date: 20160912
  Transmission Date: 20161109
  Serious: Yes (Other)
  Sender: FDA-Public Use
  Company Number: BR-JNJFOC-20160902896

PATIENT
  Age: 34 Year
  Sex: Female

DRUGS (1)
  1. REMICADE [Suspect]
     Active Substance: INFLIXIMAB
     Indication: CROHN^S DISEASE
     Route: 042

REACTIONS (6)
  - Anal abscess [Unknown]
  - Fistula [Unknown]
  - Rectal stenosis [Unknown]
  - Large intestinal stenosis [Unknown]
  - Drug ineffective [Unknown]
  - Crohn^s disease [Unknown]
